FAERS Safety Report 15590564 (Version 1)
Quarter: 2018Q4

REPORT INFORMATION
  Report Type: Spontaneous
  Country: CN (occurrence: CN)
  Receive Date: 20181106
  Receipt Date: 20181106
  Transmission Date: 20190205
  Serious: Yes (Hospitalization)
  Sender: FDA-Public Use
  Company Number: CN-PFIZER INC-2018453832

PATIENT
  Age: 24 Year
  Sex: Female

DRUGS (2)
  1. MEPEM [Suspect]
     Active Substance: MEROPENEM
     Indication: INFECTION
     Dosage: 2 G, 3X/DAY (Q8H)
     Route: 041
     Dates: start: 20180809, end: 20180823
  2. LINEZOLID. [Suspect]
     Active Substance: LINEZOLID
     Indication: INFECTION
     Dosage: 600 MG, 2X/DAY
     Route: 041
     Dates: start: 20180809

REACTIONS (2)
  - White blood cell count decreased [Recovering/Resolving]
  - Neutrophil count decreased [Recovering/Resolving]

NARRATIVE: CASE EVENT DATE: 20180811
